FAERS Safety Report 18392651 (Version 3)
Quarter: 2020Q4

REPORT INFORMATION
  Report Type: Spontaneous
  Country: JP (occurrence: JP)
  Receive Date: 20201016
  Receipt Date: 20201105
  Transmission Date: 20210114
  Serious: Yes (Hospitalization)
  Sender: FDA-Public Use
  Company Number: JP-DSJP-DSJ-2020-129902AA

PATIENT
  Age: 65 Year
  Sex: Male

DRUGS (1)
  1. LIXIANA TABLETS [Suspect]
     Active Substance: EDOXABAN TOSYLATE
     Indication: CARDIAC VALVE PROSTHESIS USER
     Dosage: 60MG/DAY
     Route: 048

REACTIONS (2)
  - Prosthetic cardiac valve thrombosis [Recovering/Resolving]
  - Off label use [Unknown]
